FAERS Safety Report 4744307-7 (Version None)
Quarter: 2005Q3

REPORT INFORMATION
  Report Type: 
  Country: None (occurrence: None)
  Receive Date: 20050812
  Receipt Date: 20050412
  Transmission Date: 20060218
  Serious: Yes (Hospitalization)
  Sender: FDA-Public Use
  Company Number: US-MERCK-0504USA01850

PATIENT
  Age: 65 Year
  Sex: Female

DRUGS (13)
  1. MECLIZINE [Concomitant]
     Route: 065
  2. TRIMOX [Concomitant]
     Route: 065
  3. NITROSTAT [Concomitant]
     Route: 065
  4. FLONASE [Concomitant]
     Route: 065
  5. METHYLPREDNISOLONE [Concomitant]
     Route: 065
  6. CEPHALEXIN [Concomitant]
     Route: 065
  7. DENAVIR [Concomitant]
     Route: 065
  8. VIOXX [Suspect]
     Indication: ARTHRITIS
     Route: 048
     Dates: start: 20001221, end: 20040901
  9. PREVACID [Concomitant]
     Indication: DYSPEPSIA
     Route: 065
  10. ALLEGRA [Concomitant]
     Route: 065
  11. DESOWEN [Concomitant]
     Route: 065
  12. ZYRTEC-D 12 HOUR [Concomitant]
     Route: 065
  13. PREMARIN [Concomitant]
     Indication: HORMONE REPLACEMENT THERAPY
     Route: 065
     Dates: start: 19990101, end: 20040201

REACTIONS (6)
  - ANGINA PECTORIS [None]
  - ATHEROSCLEROSIS [None]
  - CHEST PAIN [None]
  - DYSPEPSIA [None]
  - HYPERTENSION [None]
  - MYOCARDIAL INFARCTION [None]
